FAERS Safety Report 7962851-6 (Version None)
Quarter: 2011Q4

REPORT INFORMATION
  Report Type: 
  Country: None (occurrence: None)
  Receive Date: 20111207
  Receipt Date: 20111128
  Transmission Date: 20120403
  Serious: Yes (Other)
  Sender: FDA-Public Use
  Company Number: PHEH2011US010320

PATIENT
  Age: 10 Year
  Sex: Male

DRUGS (2)
  1. FOCALIN XR [Suspect]
     Dosage: 10 MG, QD
  2. OMEPRAZOLE [Suspect]
     Dosage: UNK UKN, UNK

REACTIONS (1)
  - COELIAC DISEASE [None]
